FAERS Safety Report 10503969 (Version 1)
Quarter: 2014Q4

REPORT INFORMATION
  Report Type: Spontaneous
  Country: US (occurrence: None)
  Receive Date: 20141007
  Receipt Date: 20141007
  Transmission Date: 20150528
  Serious: No
  Sender: FDA-Public Use
  Company Number: None

PATIENT
  Age: 74 Year
  Sex: Male
  Weight: 113.4 kg

DRUGS (2)
  1. JANTOVEN [Suspect]
     Active Substance: WARFARIN SODIUM
     Indication: BLOOD CHOLESTEROL
     Dosage: 2 PILLS AT BEDTIME
     Route: 048
  2. JANTOVEN [Suspect]
     Active Substance: WARFARIN SODIUM
     Indication: ATRIAL FIBRILLATION
     Dosage: 1 PILL ALTRERNTE WITH 2; ONCE DAILY
     Route: 048
     Dates: start: 2010

REACTIONS (2)
  - Psoriasis [None]
  - Drug interaction [None]
